FAERS Safety Report 7297040-4 (Version None)
Quarter: 2011Q1

REPORT INFORMATION
  Report Type: 
  Country: None (occurrence: None)
  Receive Date: 20110216
  Receipt Date: 20110208
  Transmission Date: 20110831
  Serious: Yes (Hospitalization)
  Sender: FDA-Public Use
  Company Number: US-PFIZER INC-2011012739

PATIENT
  Age: 58 Year
  Sex: Female

DRUGS (6)
  1. TORISEL [Suspect]
     Indication: METASTATIC SQUAMOUS CELL CARCINOMA
  2. CARBOPLATIN [Suspect]
     Indication: HEAD AND NECK CANCER
     Dosage: CYCLE 3 DAY 8
     Dates: start: 20101101, end: 20110110
  3. TAXOL [Suspect]
     Indication: METASTATIC SQUAMOUS CELL CARCINOMA
  4. TORISEL [Suspect]
     Indication: HEAD AND NECK CANCER
     Dosage: 15 MG, CYCLE 3 DAY 8
     Dates: start: 20101101, end: 20110110
  5. CARBOPLATIN [Suspect]
     Indication: METASTATIC SQUAMOUS CELL CARCINOMA
  6. TAXOL [Suspect]
     Indication: HEAD AND NECK CANCER
     Dosage: 80 MG/M2, CYCLE 3 DAY 8
     Dates: start: 20101101, end: 20110110

REACTIONS (3)
  - RESPIRATORY FAILURE [None]
  - ALANINE AMINOTRANSFERASE INCREASED [None]
  - ASPARTATE AMINOTRANSFERASE INCREASED [None]
